FAERS Safety Report 10095394 (Version 1)
Quarter: 2014Q2

REPORT INFORMATION
  Report Type: Spontaneous
  Country: US (occurrence: US)
  Receive Date: 20140422
  Receipt Date: 20140422
  Transmission Date: 20141212
  Serious: No
  Sender: FDA-Public Use
  Company Number: US-GILEAD-2013-0077129

PATIENT
  Age: 80 Year
  Sex: Female

DRUGS (2)
  1. LETAIRIS [Suspect]
     Indication: PULMONARY HYPERTENSION
     Dosage: 10 MG, QD
     Dates: start: 20121018
  2. COUMADIN                           /00014802/ [Suspect]
     Indication: THROMBOSIS
     Dosage: 7.5 MG, QD
     Dates: start: 20130201

REACTIONS (2)
  - Contusion [Not Recovered/Not Resolved]
  - Eye haemorrhage [Not Recovered/Not Resolved]
